FAERS Safety Report 18084339 (Version 2)
Quarter: 2021Q3

REPORT INFORMATION
  Report Type: Spontaneous
  Country: SG (occurrence: SG)
  Receive Date: 20200729
  Receipt Date: 20210811
  Transmission Date: 20211014
  Serious: Yes (Hospitalization)
  Sender: FDA-Public Use
  Company Number: SG-LUPIN PHARMACEUTICALS INC.-2020-03856

PATIENT
  Sex: Male

DRUGS (20)
  1. ISONIAZID. [Concomitant]
     Active Substance: ISONIAZID
     Indication: EVIDENCE BASED TREATMENT
     Dosage: UNK
     Route: 065
  2. ETHAMBUTOL [Suspect]
     Active Substance: ETHAMBUTOL HYDROCHLORIDE
     Indication: DISSEMINATED BACILLUS CALMETTE-GUERIN INFECTION
     Dosage: UNK
     Route: 065
  3. IMUKIN [Concomitant]
     Active Substance: INTERFERON GAMMA
     Indication: DISSEMINATED BACILLUS CALMETTE-GUERIN INFECTION
     Dosage: UNK
     Route: 058
  4. RIFAMPIN. [Suspect]
     Active Substance: RIFAMPIN
     Indication: DISSEMINATED BACILLUS CALMETTE-GUERIN INFECTION
  5. ETHAMBUTOL [Suspect]
     Active Substance: ETHAMBUTOL HYDROCHLORIDE
     Indication: MENINGITIS
  6. ISONIAZID. [Concomitant]
     Active Substance: ISONIAZID
     Indication: DISSEMINATED BACILLUS CALMETTE-GUERIN INFECTION
  7. PYRAZINAMIDE. [Concomitant]
     Active Substance: PYRAZINAMIDE
     Indication: EVIDENCE BASED TREATMENT
     Dosage: UNK
     Route: 065
  8. PREDNISOLONE. [Concomitant]
     Active Substance: PREDNISOLONE
     Indication: INFLAMMATION
     Dosage: AT WEANING UNSPECIFIED DOSES
     Route: 048
  9. BCG VACCINE [Concomitant]
     Active Substance: BCG VACCINE
     Indication: IMMUNISATION
     Dosage: RECEIVED BCG VACCINE AT BIRTH
     Route: 065
  10. IMUKIN [Concomitant]
     Active Substance: INTERFERON GAMMA
     Indication: MENINGITIS
  11. MOXIFLOXACIN HYDROCHLORIDE. [Suspect]
     Active Substance: MOXIFLOXACIN HYDROCHLORIDE
     Indication: DISSEMINATED BACILLUS CALMETTE-GUERIN INFECTION
     Dosage: UNK
     Route: 065
  12. PARA?AMINOSALICYLIC ACID [Concomitant]
     Active Substance: AMINOSALICYLIC ACID
     Indication: DISSEMINATED BACILLUS CALMETTE-GUERIN INFECTION
     Dosage: UNK
     Route: 065
  13. MOXIFLOXACIN HYDROCHLORIDE. [Suspect]
     Active Substance: MOXIFLOXACIN HYDROCHLORIDE
     Indication: MENINGITIS
  14. CYCLOSERINE. [Suspect]
     Active Substance: CYCLOSERINE
     Indication: DISSEMINATED BACILLUS CALMETTE-GUERIN INFECTION
     Dosage: UNK
     Route: 065
  15. CYCLOSERINE. [Suspect]
     Active Substance: CYCLOSERINE
     Indication: MENINGITIS
  16. PREDNISOLONE. [Concomitant]
     Active Substance: PREDNISOLONE
     Indication: REDUCTION OF INCREASED INTRACRANIAL PRESSURE
  17. RIFAMPIN. [Suspect]
     Active Substance: RIFAMPIN
     Indication: EVIDENCE BASED TREATMENT
     Dosage: UNK
     Route: 065
  18. RIFAMPIN. [Suspect]
     Active Substance: RIFAMPIN
     Indication: MENINGITIS
  19. ETHAMBUTOL [Suspect]
     Active Substance: ETHAMBUTOL HYDROCHLORIDE
     Indication: EVIDENCE BASED TREATMENT
  20. PARA?AMINOSALICYLIC ACID [Concomitant]
     Active Substance: AMINOSALICYLIC ACID
     Indication: MENINGITIS

REACTIONS (1)
  - Drug ineffective [Unknown]
